FAERS Safety Report 18772668 (Version 1)
Quarter: 2021Q1

REPORT INFORMATION
  Report Type: Spontaneous
  Country: US (occurrence: US)
  Receive Date: 20210121
  Receipt Date: 20210121
  Transmission Date: 20210419
  Serious: Yes (Hospitalization, Disabling, Congenital Anomaly)
  Sender: FDA-Public Use
  Company Number: None

PATIENT
  Age: 26 Year
  Sex: Female
  Weight: 61.24 kg

DRUGS (1)
  1. NEXPLANON [Suspect]
     Active Substance: ETONOGESTREL
     Dates: start: 20150101, end: 20170101

REACTIONS (5)
  - Maternal exposure timing unspecified [None]
  - Pregnancy with implant contraceptive [None]
  - Abortion spontaneous [None]
  - Ectopic pregnancy [None]
  - Maternal drugs affecting foetus [None]

NARRATIVE: CASE EVENT DATE: 20210121
